FAERS Safety Report 9938172 (Version 1)
Quarter: 2014Q1

REPORT INFORMATION
  Report Type: Report from Study
  Country: US (occurrence: US)
  Receive Date: 20140303
  Receipt Date: 20140303
  Transmission Date: 20141002
  Serious: Yes (Death)
  Sender: FDA-Public Use
  Company Number: US-ROCHE-1354809

PATIENT
  Age: 58 Year
  Sex: Male
  Weight: 98.52 kg

DRUGS (22)
  1. AVASTIN [Suspect]
     Indication: COLON CANCER
     Dosage: 5 MG/KG. 30/JAN/2012, 13/FEB/2012, 27/FEB/2012, 12/MAR/2012, 23/APR/2012, 07/MAY/2012, 21/MAY/2012,
     Route: 042
     Dates: start: 20120116
  2. EMEND [Concomitant]
     Route: 048
  3. LEVOFLOXACIN [Concomitant]
     Route: 048
  4. EMLA CREAM [Concomitant]
     Route: 061
  5. NYSTATIN [Concomitant]
     Route: 048
  6. LOMOTIL (UNITED STATES) [Concomitant]
     Indication: NAUSEA
     Dosage: 2.5 -.025
     Route: 048
  7. PROCHLORPERAZINE MALEATE [Concomitant]
     Indication: NAUSEA
     Route: 048
  8. ONDANSETRON HYDROCHLORIDE [Concomitant]
     Indication: NAUSEA
     Route: 048
  9. PROTONIX (UNITED STATES) [Concomitant]
     Route: 048
  10. OXALIPLATIN [Concomitant]
     Route: 042
  11. FOSAPREPITANT DIMEGLUMINE [Concomitant]
     Route: 042
  12. ATROPINE SULFATE [Concomitant]
     Route: 042
  13. HYDROCORTISONE SODIUM SUCCINATE [Concomitant]
     Route: 042
  14. METHYLPREDNISOLONE SODIUM SUCCINATE [Concomitant]
     Route: 042
  15. IRINOTECAN HYDROCHLORIDE [Concomitant]
     Route: 042
  16. 5-FU [Concomitant]
     Route: 042
  17. DEXAMETHASONE SODIUM PHOSPHATE [Concomitant]
     Route: 042
  18. CARAFATE [Concomitant]
     Route: 048
  19. PALONOSETRON [Concomitant]
     Route: 042
  20. FERROUS SULFATE [Concomitant]
     Route: 048
  21. ALTEPLASE [Concomitant]
     Route: 040
  22. ATROPINE SULFATE [Concomitant]
     Route: 042

REACTIONS (15)
  - Death [Fatal]
  - Fatigue [Unknown]
  - Nausea [Unknown]
  - Asthenia [Unknown]
  - Anxiety [Unknown]
  - Dehydration [Unknown]
  - Vomiting [Unknown]
  - Abdominal hernia [Unknown]
  - Iron deficiency anaemia [Unknown]
  - Dyspepsia [Unknown]
  - Insomnia [Unknown]
  - Arthralgia [Unknown]
  - Testicular pain [Unknown]
  - Irritability [Unknown]
  - General physical health deterioration [Unknown]
